FAERS Safety Report 12553639 (Version 1)
Quarter: 2016Q3

REPORT INFORMATION
  Report Type: Spontaneous
  Country: ES (occurrence: ES)
  Receive Date: 20160713
  Receipt Date: 20160713
  Transmission Date: 20161109
  Serious: Yes (Other)
  Sender: FDA-Public Use
  Company Number: ES-IMPAX LABORATORIES, INC-2016-IPXL-00739

PATIENT
  Age: 61 Year
  Sex: Female

DRUGS (2)
  1. ADRENACLICK [Suspect]
     Active Substance: EPINEPHRINE
     Indication: ANAPHYLACTIC REACTION
     Dosage: (HIGH DOSE)
     Route: 042
  2. NORADRENALIN [Suspect]
     Active Substance: NOREPINEPHRINE\NOREPINEPHRINE BITARTRATE
     Indication: ANAPHYLACTIC REACTION
     Dosage: (HIGH DOSE)
     Route: 042

REACTIONS (2)
  - Bundle branch block left [Recovered/Resolved]
  - Stress cardiomyopathy [Recovered/Resolved]
